FAERS Safety Report 16334613 (Version 2)
Quarter: 2019Q2

REPORT INFORMATION
  Report Type: Spontaneous
  Country: JP (occurrence: JP)
  Receive Date: 20190520
  Receipt Date: 20190524
  Transmission Date: 20190711
  Serious: Yes (Death, Hospitalization)
  Sender: FDA-Public Use
  Company Number: JP-VALIDUS PHARMACEUTICALS LLC-JP-2019VAL000243

PATIENT

DRUGS (2)
  1. MAGNESIUM OXIDE. [Concomitant]
     Active Substance: MAGNESIUM OXIDE
     Indication: CONSTIPATION
     Dosage: DOSAGE IS UNCERTAIN.
     Route: 065
  2. ROCALTROL [Suspect]
     Active Substance: CALCITRIOL
     Indication: OSTEOPOROSIS
     Dosage: 0.25 ?G, DOSE INTERVAL UNCERTAINTY
     Route: 065

REACTIONS (4)
  - Death [Fatal]
  - Hypercalcaemia [Recovering/Resolving]
  - Hypermagnesaemia [Recovering/Resolving]
  - Acute kidney injury [Recovering/Resolving]
